FAERS Safety Report 4334359-0 (Version None)
Quarter: 2004Q2

REPORT INFORMATION
  Report Type: 
  Country: None (occurrence: None)
  Receive Date: 20040405
  Receipt Date: 20040312
  Transmission Date: 20050107
  Serious: Yes (Life-Threatening, Hospitalization)
  Sender: FDA-Public Use
  Company Number: 20041768

PATIENT
  Age: 4 Year
  Sex: Male

DRUGS (1)
  1. LIORESAL [Suspect]
     Indication: MUSCLE SPASTICITY
     Dosage: DAILY, INTRATHECAL
     Route: 037

REACTIONS (15)
  - AUTONOMIC NERVOUS SYSTEM IMBALANCE [None]
  - BLOOD PRESSURE FLUCTUATION [None]
  - CLONUS [None]
  - CONVULSION [None]
  - DRUG WITHDRAWAL SYNDROME [None]
  - HYPOXIA [None]
  - MUSCLE SPASTICITY [None]
  - PNEUMONIA [None]
  - PYREXIA [None]
  - RALES [None]
  - RESPIRATORY DISTRESS [None]
  - RESPIRATORY FAILURE [None]
  - TACHYCARDIA [None]
  - TREMOR [None]
  - WHEEZING [None]
